FAERS Safety Report 9368695 (Version 1)
Quarter: 2013Q2

REPORT INFORMATION
  Report Type: Report from Study
  Country: US (occurrence: US)
  Receive Date: 20130626
  Receipt Date: 20130626
  Transmission Date: 20140414
  Serious: Yes (Life-Threatening, Hospitalization)
  Sender: FDA-Public Use
  Company Number: US-009507513-1306USA006874

PATIENT
  Age: 61 Year
  Sex: Male

DRUGS (15)
  1. TEMODAR [Suspect]
     Indication: GLIOBLASTOMA
     Dosage: 75 MG/M2,(150 MG)
     Route: 048
     Dates: start: 20130509
  2. TEMODAR [Suspect]
     Dosage: UNK
     Route: 048
     Dates: start: 20130519, end: 20130520
  3. TEMODAR [Suspect]
     Dosage: UNK
     Route: 048
     Dates: start: 20130527
  4. BEVACIZUMAB [Suspect]
     Indication: GLIOBLASTOMA
     Dosage: 800 MG,1 QOW (10 MG/KG)
     Route: 042
     Dates: start: 20130517
  5. LISINOPRIL [Concomitant]
     Dosage: 40 MG, QD
  6. HYDRALAZINE HYDROCHLORIDE [Concomitant]
     Dosage: 10 ML, Q8H
  7. ZOFRAN [Concomitant]
     Dosage: 18 MG
  8. RISPERDAL [Concomitant]
     Dosage: 1 MG, HS
  9. NOVOLOG [Concomitant]
     Dosage: UNK
  10. KEPPRA [Concomitant]
     Dosage: 1 G, Q12H
  11. ZANTAC [Concomitant]
     Dosage: 150 MG, Q12H
  12. TYLENOL [Concomitant]
     Dosage: UNK
  13. DEXAMETHASONE [Concomitant]
     Dosage: 16 UNK, UNK
  14. FLEXERIL [Concomitant]
     Dosage: 10 MG, TID, AS NEEDED
  15. MICARDIS [Concomitant]

REACTIONS (4)
  - Haemorrhage intracranial [Unknown]
  - Hypertension [Unknown]
  - Alanine aminotransferase increased [Unknown]
  - Pyrexia [Unknown]
